FAERS Safety Report 6857942-7 (Version None)
Quarter: 2010Q3

REPORT INFORMATION
  Report Type: 
  Country: None (occurrence: None)
  Receive Date: 20100715
  Receipt Date: 20100702
  Transmission Date: 20110219
  Serious: Yes (Hospitalization)
  Sender: FDA-Public Use
  Company Number: 7010038

PATIENT
  Age: 37 Year
  Sex: Female
  Weight: 77 kg

DRUGS (6)
  1. REBIF [Suspect]
     Indication: MULTIPLE SCLEROSIS
     Dosage: 44 MCG, 3 IN 1 WK, SUBCUTANEOUS
     Route: 058
     Dates: start: 20090620
  2. AMITIZA (ALL OTHER THERAPUETIC PRODUCTS) [Concomitant]
  3. STEROIDS (CORTICOSTEROIDS) [Concomitant]
  4. LYRICA [Concomitant]
  5. TRAMADOL HCL [Concomitant]
  6. PHENERGAN (PHENERGAN /00488301/) [Concomitant]

REACTIONS (6)
  - ADRENOCORTICAL INSUFFICIENCY ACUTE [None]
  - BLADDER DISORDER [None]
  - BLOOD PRESSURE FLUCTUATION [None]
  - BLOOD PRESSURE INCREASED [None]
  - CONSTIPATION [None]
  - OVARIAN CYST [None]
